FAERS Safety Report 5933405-8 (Version None)
Quarter: 2008Q4

REPORT INFORMATION
  Report Type: 
  Country: None (occurrence: None)
  Receive Date: 20081023
  Receipt Date: 20081009
  Transmission Date: 20090506
  Serious: Yes (Hospitalization, Other)
  Sender: FDA-Public Use
  Company Number: 2008SP019733

PATIENT
  Age: 76 Year
  Sex: Male
  Weight: 111.5849 kg

DRUGS (15)
  1. AFRIN [Suspect]
     Indication: NASOPHARYNGITIS
     Dosage: QD; NAS
     Route: 045
     Dates: start: 20080810, end: 20080811
  2. AFRIN [Suspect]
     Indication: OFF LABEL USE
     Dosage: QD; NAS
     Route: 045
     Dates: start: 20080810, end: 20080811
  3. SYNTHROID [Suspect]
     Dosage: PO
     Route: 048
  4. ASPIRIN [Concomitant]
  5. COLCHICINE [Concomitant]
  6. CARVEDILOL [Concomitant]
  7. LISINOPRIL [Concomitant]
  8. SINVASTATIN [Concomitant]
  9. MECLIZINE [Concomitant]
  10. FEXOFENADINE [Concomitant]
  11. OMEPRAZOLE [Concomitant]
  12. INDOMETHACIN [Concomitant]
  13. NOVOLOG [Concomitant]
  14. LANTUS [Concomitant]
  15. PLAVIX [Concomitant]

REACTIONS (2)
  - HEART RATE DECREASED [None]
  - HEART RATE INCREASED [None]
